FAERS Safety Report 7799264-6 (Version None)
Quarter: 2011Q4

REPORT INFORMATION
  Report Type: 
  Country: None (occurrence: None)
  Receive Date: 20111006
  Receipt Date: 20110323
  Transmission Date: 20120403
  Serious: No
  Sender: FDA-Public Use
  Company Number: US-GLAXOSMITHKLINE-A0919541A

PATIENT
  Age: 13 Year
  Sex: Female

DRUGS (2)
  1. BENADRYL [Concomitant]
  2. DUAC [Suspect]
     Indication: ACNE
     Dosage: 1APP PER DAY
     Route: 061
     Dates: start: 20101201

REACTIONS (2)
  - SWELLING FACE [None]
  - ERYTHEMA [None]
